FAERS Safety Report 7371498-4 (Version None)
Quarter: 2011Q1

REPORT INFORMATION
  Report Type: 
  Country: None (occurrence: None)
  Receive Date: 20110324
  Receipt Date: 20110316
  Transmission Date: 20110831
  Serious: Yes (Other)
  Sender: FDA-Public Use
  Company Number: CA-US-EMD SERONO, INC.-7025315

PATIENT
  Sex: Female

DRUGS (22)
  1. SPIRONOLACTONE [Concomitant]
  2. HYDROCHLOROTHIAZIDE [Concomitant]
  3. ASPIRIN [Concomitant]
     Dosage: LOW DOSE
  4. VIT C WITH ROSE HIPS (VITAMIN C WITH ROSE HIPS) [Concomitant]
  5. GLUCOSAMINE SULFATE [Concomitant]
  6. NASONEX [Concomitant]
     Route: 045
  7. REBIF [Suspect]
     Indication: RELAPSING-REMITTING MULTIPLE SCLEROSIS
     Route: 058
     Dates: start: 20101021
  8. SYMBICORT [Concomitant]
     Dosage: 2 PUFFS
  9. UROMOL HC [Concomitant]
     Indication: DRY SKIN
  10. LORAZEPAM [Concomitant]
  11. TEMAZETAM [Concomitant]
  12. VIT D (VITAMIN D) [Concomitant]
  13. OMEGA 3 WILD SALMON (OMEGA 3) [Concomitant]
  14. REBIF [Suspect]
  15. TIVEA-A [Concomitant]
     Indication: PRECANCEROUS SKIN LESION
  16. TRIAZADONE (TRAZODONE) [Concomitant]
  17. NEXIUM [Concomitant]
  18. VIT B COMPLEX [Concomitant]
  19. MULTI-VITAMINS [Concomitant]
  20. ELECOMBE [Concomitant]
     Indication: EAR DISORDER
  21. IBUPROFEN [Concomitant]
     Indication: PREMEDICATION
  22. ATROVENT [Concomitant]
     Dosage: 2-4 PUFFS

REACTIONS (14)
  - WEIGHT DECREASED [None]
  - MUSCLE SPASMS [None]
  - ANXIETY [None]
  - NECK PAIN [None]
  - DIABETES MELLITUS [None]
  - INJECTION SITE ERYTHEMA [None]
  - GASTRIC DISORDER [None]
  - DEPRESSION [None]
  - HEPATIC ENZYME INCREASED [None]
  - MUSCULAR WEAKNESS [None]
  - NAUSEA [None]
  - FATIGUE [None]
  - BACK PAIN [None]
  - INFLUENZA LIKE ILLNESS [None]
